FAERS Safety Report 6223875-2 (Version None)
Quarter: 2009Q2

REPORT INFORMATION
  Report Type: 
  Country: None (occurrence: None)
  Receive Date: 20090611
  Receipt Date: 20090304
  Transmission Date: 20091009
  Serious: No
  Sender: FDA-Public Use
  Company Number: US-ABBOTT-09P-163-0560487-00

PATIENT
  Sex: Female

DRUGS (2)
  1. HUMIRA [Suspect]
     Indication: CROHN'S DISEASE
     Route: 058
     Dates: start: 20081022, end: 20090225
  2. HUMIRA [Suspect]
     Route: 058
     Dates: start: 20090225

REACTIONS (2)
  - CROHN'S DISEASE [None]
  - INJECTION SITE HAEMORRHAGE [None]
